FAERS Safety Report 18599173 (Version 3)
Quarter: 2021Q1

REPORT INFORMATION
  Report Type: Report from Study
  Country: US (occurrence: US)
  Receive Date: 20201210
  Receipt Date: 20210318
  Transmission Date: 20210419
  Serious: Yes (Death, Life-Threatening, Other)
  Sender: FDA-Public Use
  Company Number: NVSC2020US328407

PATIENT
  Sex: Female
  Weight: 97 kg

DRUGS (3)
  1. KYMRIAH [Suspect]
     Active Substance: TISAGENLECLEUCEL
     Indication: ACUTE LYMPHOCYTIC LEUKAEMIA
     Dosage: 26 ML, ONCE/SINGLE (24/26 MG)
     Route: 042
     Dates: start: 20201106, end: 20201106
  2. CYCLOPHOSPHAMIDE. [Concomitant]
     Active Substance: CYCLOPHOSPHAMIDE
     Indication: CHEMOTHERAPY
     Dosage: UNK
     Route: 065
  3. FLUDARABINE [Concomitant]
     Active Substance: FLUDARABINE PHOSPHATE
     Indication: CHEMOTHERAPY
     Dosage: UNK
     Route: 065

REACTIONS (23)
  - Candida infection [Unknown]
  - Pulmonary toxicity [Unknown]
  - Cerebrovascular accident [Unknown]
  - Drug ineffective [Fatal]
  - Pyrexia [Fatal]
  - Depressed level of consciousness [Unknown]
  - Cytokine release syndrome [Fatal]
  - Staphylococcal infection [Unknown]
  - Endothelial dysfunction [Unknown]
  - Hypotension [Fatal]
  - Pulmonary haemorrhage [Unknown]
  - Haemoglobin decreased [Unknown]
  - Hypoxia [Fatal]
  - Nephropathy toxic [Unknown]
  - Aphasia [Unknown]
  - Acute respiratory distress syndrome [Fatal]
  - Pseudomonas infection [Unknown]
  - Stenotrophomonas infection [Unknown]
  - Neurotoxicity [Recovered/Resolved]
  - Gastrointestinal toxicity [Unknown]
  - Cytopenia [Unknown]
  - Leukoencephalopathy [Unknown]
  - Acute lymphocytic leukaemia recurrent [Unknown]
